FAERS Safety Report 12393420 (Version 1)
Quarter: 2016Q2

REPORT INFORMATION
  Report Type: Spontaneous
  Country: US (occurrence: None)
  Receive Date: 20160520
  Receipt Date: 20160520
  Transmission Date: 20160815
  Serious: Yes (Other)
  Sender: FDA-Public Use
  Company Number: None

PATIENT
  Age: 58 Year
  Sex: Female
  Weight: 81.65 kg

DRUGS (15)
  1. FOURESAMIDE [Concomitant]
  2. PROTONIX [Concomitant]
     Active Substance: PANTOPRAZOLE SODIUM
  3. INSULIN PUMP [Concomitant]
     Active Substance: INSULIN NOS
  4. VITAMIN D [Concomitant]
     Active Substance: CHOLECALCIFEROL
  5. SERTRALINE [Concomitant]
     Active Substance: SERTRALINE HYDROCHLORIDE
  6. ALLOPURINAL [Concomitant]
  7. NOVOLOG [Concomitant]
     Active Substance: INSULIN ASPART
  8. CLOPIDAGREL [Concomitant]
  9. REPATHA [Suspect]
     Active Substance: EVOLOCUMAB
     Indication: HYPERLIPIDAEMIA
     Dosage: BI-MONTHLY  GIVEN INTO/UNDER THE SKIN
     Route: 058
     Dates: start: 20160315, end: 20160501
  10. VERAPAMIL [Concomitant]
     Active Substance: VERAPAMIL HYDROCHLORIDE
  11. ASPIRIN. [Concomitant]
     Active Substance: ASPIRIN
  12. BAYER CONTOUR GLUCOSE MONITOR [Concomitant]
  13. CGM [Concomitant]
  14. AMLODAPINE [Concomitant]
  15. METOPROLOL. [Concomitant]
     Active Substance: METOPROLOL

REACTIONS (2)
  - Upper respiratory tract infection [None]
  - Feeling abnormal [None]

NARRATIVE: CASE EVENT DATE: 20160506
